FAERS Safety Report 15890816 (Version 1)
Quarter: 2019Q1

REPORT INFORMATION
  Report Type: Spontaneous
  Country: SG (occurrence: SG)
  Receive Date: 20190130
  Receipt Date: 20190130
  Transmission Date: 20190417
  Serious: Yes (Hospitalization, Other)
  Sender: FDA-Public Use
  Company Number: SG-B.I. PHARMACEUTICALS,INC./RIDGEFIELD-2019-BI-003360

PATIENT
  Age: 50 Year
  Sex: Male
  Weight: 63 kg

DRUGS (1)
  1. GLYXAMBI [Suspect]
     Active Substance: EMPAGLIFLOZIN\LINAGLIPTIN
     Indication: DIABETES MELLITUS
     Dosage: DOSE: 25/5 MILLIGRAM
     Route: 048
     Dates: start: 20180528

REACTIONS (8)
  - Abscess limb [Recovered/Resolved]
  - Bone abscess [Recovered/Resolved]
  - Hyperkalaemia [Recovered/Resolved]
  - Localised infection [Recovered/Resolved]
  - Euglycaemic diabetic ketoacidosis [Recovered/Resolved]
  - Peripheral swelling [Recovered/Resolved]
  - Acidosis [Recovered/Resolved]
  - Vomiting [Recovered/Resolved]

NARRATIVE: CASE EVENT DATE: 20181212
